FAERS Safety Report 6639905-X (Version None)
Quarter: 2010Q1

REPORT INFORMATION
  Report Type: 
  Country: None (occurrence: None)
  Receive Date: 20100318
  Receipt Date: 20100315
  Transmission Date: 20100710
  Serious: Yes (Other)
  Sender: FDA-Public Use
  Company Number: US-SANOFI-AVENTIS-2010SA014307

PATIENT
  Age: 61 Year
  Sex: Female
  Weight: 76.4 kg

DRUGS (3)
  1. MULTAQ [Suspect]
     Route: 048
     Dates: start: 20090801
  2. MULTAQ [Suspect]
     Route: 048
     Dates: start: 20100310, end: 20100310
  3. METOPROLOL TARTRATE [Concomitant]

REACTIONS (1)
  - ATRIAL FIBRILLATION [None]
